FAERS Safety Report 10404247 (Version 2)
Quarter: 2015Q1

REPORT INFORMATION
  Report Type: Spontaneous
  Country: US (occurrence: None)
  Receive Date: 20140131
  Receipt Date: 20150129
  Transmission Date: 20150720
  Serious: Yes (Other)
  Sender: FDA-Public Use
  Company Number: 062822

PATIENT
  Age: 23 Year
  Sex: Male

DRUGS (5)
  1. DEPAKOTE [Concomitant]
     Active Substance: DIVALPROEX SODIUM
  2. KEPPRA [Suspect]
     Active Substance: LEVETIRACETAM
     Indication: GENERALISED TONIC-CLONIC SEIZURE
     Route: 048
     Dates: start: 201205, end: 2012
  3. KEPPRA [Suspect]
     Active Substance: LEVETIRACETAM
     Indication: EPILEPSY
     Route: 048
     Dates: start: 201205, end: 2012
  4. KEPPRA [Suspect]
     Active Substance: LEVETIRACETAM
     Indication: SEIZURE
     Route: 048
     Dates: start: 201205, end: 2012
  5. CLONOPIN [Concomitant]
     Active Substance: CLONAZEPAM

REACTIONS (6)
  - Middle insomnia [None]
  - Mood altered [None]
  - Food aversion [None]
  - Weight decreased [None]
  - Personality change [None]
  - Underdose [None]

NARRATIVE: CASE EVENT DATE: 2012
